FAERS Safety Report 8071760-6 (Version None)
Quarter: 2012Q1

REPORT INFORMATION
  Report Type: 
  Country: None (occurrence: None)
  Receive Date: 20120125
  Receipt Date: 20120118
  Transmission Date: 20120608
  Serious: Yes (Other)
  Sender: FDA-Public Use
  Company Number: GB-ASTRAZENECA-2012SE03563

PATIENT
  Age: 73 Year

DRUGS (6)
  1. RAMIPRIL [Concomitant]
     Indication: BLOOD PRESSURE ABNORMAL
     Route: 048
  2. FLUOXETINE [Concomitant]
     Indication: BIPOLAR DISORDER
     Route: 048
  3. QUETIAPINE [Suspect]
     Indication: BIPOLAR DISORDER
     Route: 048
     Dates: start: 20110722, end: 20111115
  4. RISPERIDONE [Suspect]
     Indication: BIPOLAR DISORDER
     Route: 048
     Dates: end: 20110722
  5. PREGABALIN [Concomitant]
     Indication: ANXIETY
     Route: 048
     Dates: start: 20110629
  6. RISPERIDONE [Suspect]
     Indication: ANXIETY
     Route: 048
     Dates: end: 20110722

REACTIONS (3)
  - DRUG WITHDRAWAL SYNDROME [None]
  - TARDIVE DYSKINESIA [None]
  - TONGUE PARALYSIS [None]
